FAERS Safety Report 6845112-8 (Version None)
Quarter: 2010Q3

REPORT INFORMATION
  Report Type: 
  Country: None (occurrence: None)
  Receive Date: 20100715
  Receipt Date: 20070814
  Transmission Date: 20110219
  Serious: No
  Sender: FDA-Public Use
  Company Number: US-PFIZER INC-2007068030

PATIENT
  Sex: Female
  Weight: 73.5 kg

DRUGS (6)
  1. CHANTIX [Suspect]
     Indication: SMOKING CESSATION THERAPY
     Dates: start: 20070804, end: 20070813
  2. HYDROCHLOROTHIAZIDE [Concomitant]
     Indication: HYPERTENSION
  3. LISINOPRIL [Concomitant]
     Indication: HYPERTENSION
  4. LESCOL [Concomitant]
     Indication: BLOOD CHOLESTEROL INCREASED
  5. POTASSIUM CHLORIDE [Concomitant]
  6. XANAX [Concomitant]

REACTIONS (4)
  - CONSTIPATION [None]
  - DYSGEUSIA [None]
  - NAUSEA [None]
  - VOMITING [None]
